FAERS Safety Report 4467227-4 (Version None)
Quarter: 2004Q4

REPORT INFORMATION
  Report Type: 
  Country: None (occurrence: None)
  Receive Date: 20041006
  Receipt Date: 20041001
  Transmission Date: 20050328
  Serious: Yes (Disabling)
  Sender: FDA-Public Use
  Company Number: ES-MERCK-0410ESP00004

PATIENT
  Sex: Male

DRUGS (2)
  1. ENALAPRIL MALEATE [Suspect]
     Indication: HYPERTENSION
     Route: 048
     Dates: end: 20040101
  2. VIOXX [Suspect]
     Indication: TENSION HEADACHE
     Route: 048
     Dates: start: 20000101, end: 20040301

REACTIONS (3)
  - ERYTHEMA MULTIFORME [None]
  - PHOTOSENSITIVITY REACTION [None]
  - PRURITUS [None]
